FAERS Safety Report 8801421 (Version 1)
Quarter: 2012Q4

REPORT INFORMATION
  Report Type: 
  Country: FR (occurrence: FR)
  Receive Date: 20120921
  Receipt Date: 20120921
  Transmission Date: 20130627
  Serious: Yes (Hospitalization, Other)
  Sender: FDA-Public Use
  Company Number: FR-BAXTER-2012BAX016926

PATIENT
  Age: 18 Year
  Sex: Female
  Weight: 43 kg

DRUGS (12)
  1. ENDOXAN 2000 MG, LYOPHILISAT POUR SOLUTION INJECTABLE [Suspect]
     Indication: ACUTE LYMPHOBLASTIC LEUKEMIA
     Route: 042
     Dates: start: 20120622, end: 20120622
  2. ENDOXAN 2000 MG, LYOPHILISAT POUR SOLUTION INJECTABLE [Suspect]
     Route: 042
     Dates: start: 20120706, end: 20120706
  3. KIDROLASE [Suspect]
     Indication: ACUTE LYMPHOBLASTIC LEUKEMIA
     Route: 042
     Dates: start: 20120629, end: 20120719
  4. ARACYTINE [Suspect]
     Indication: ACUTE LYMPHOBLASTIC LEUKEMIA
     Route: 037
     Dates: start: 20120626, end: 20120626
  5. ARACYTINE [Suspect]
     Route: 037
     Dates: start: 20120701, end: 20120701
  6. METHOTREXATE [Suspect]
     Indication: ACUTE LYMPHOBLASTIC LEUKEMIA
     Route: 037
     Dates: start: 20120626, end: 20120626
  7. METHOTREXATE [Suspect]
     Route: 037
     Dates: start: 20120701, end: 20120701
  8. CERUBIDINE [Suspect]
     Indication: ACUTE LYMPHOBLASTIC LEUKEMIA
     Route: 042
     Dates: start: 20120622, end: 20120707
  9. CERUBIDINE [Suspect]
     Route: 042
     Dates: start: 20120622, end: 20120707
  10. ONCOVIN [Suspect]
     Indication: ACUTE LYMPHOBLASTIC LEUKEMIA
     Route: 042
     Dates: start: 20120622
  11. ONCOVIN [Suspect]
     Route: 042
     Dates: start: 20120706, end: 20120713
  12. NOMEGESTROL [Suspect]
     Indication: DRUG USE FOR UNKNOWN INDICATION
     Route: 048
     Dates: end: 20120821

REACTIONS (3)
  - Deep vein thrombosis [Recovering/Resolving]
  - Cerebral venous thrombosis [Recovering/Resolving]
  - Pulmonary embolism [Unknown]
